FAERS Safety Report 7308038-1 (Version None)
Quarter: 2011Q1

REPORT INFORMATION
  Report Type: 
  Country: None (occurrence: None)
  Receive Date: 20110223
  Receipt Date: 20100806
  Transmission Date: 20110831
  Serious: Yes (Hospitalization)
  Sender: FDA-Public Use
  Company Number: US-BAYER-200944095NA

PATIENT
  Sex: Female
  Weight: 70 kg

DRUGS (6)
  1. MOTRIN [Concomitant]
  2. MYLANTA [CALCIUM CARBONATE] [Concomitant]
  3. YASMIN [Suspect]
     Indication: PREMENSTRUAL SYNDROME
     Route: 048
  4. YAZ [Suspect]
     Indication: PREMENSTRUAL SYNDROME
     Route: 048
  5. YASMIN [Suspect]
     Indication: CONTRACEPTION
  6. YAZ [Suspect]
     Indication: CONTRACEPTION

REACTIONS (10)
  - VOMITING [None]
  - HEPATIC ENZYME INCREASED [None]
  - CHOLECYSTITIS ACUTE [None]
  - ABDOMINAL PAIN UPPER [None]
  - CHOLELITHIASIS [None]
  - PYREXIA [None]
  - CHILLS [None]
  - BLOOD AMYLASE INCREASED [None]
  - LIPASE INCREASED [None]
  - PANCREATITIS [None]
